FAERS Safety Report 6114940-9 (Version None)
Quarter: 2009Q1

REPORT INFORMATION
  Report Type: 
  Country: None (occurrence: None)
  Receive Date: 20090313
  Receipt Date: 20090306
  Transmission Date: 20090719
  Serious: Yes (Other)
  Sender: FDA-Public Use
  Company Number: US-ELI_LILLY_AND_COMPANY-US200903001875

PATIENT
  Sex: Female

DRUGS (6)
  1. HUMALOG [Suspect]
  2. HUMULIN 70/30 [Suspect]
     Indication: TYPE 2 DIABETES MELLITUS
     Dosage: UNK, 2/D
  3. HUMULIN R [Suspect]
     Indication: TYPE 2 DIABETES MELLITUS
     Dosage: UNK, AS NEEDED
  4. CORTISONE [Concomitant]
     Indication: ROTATOR CUFF SYNDROME
     Dates: start: 20081101
  5. COUMADIN [Concomitant]
     Indication: PULMONARY EMBOLISM
     Dosage: UNK, UNK
     Dates: start: 20050101
  6. NOVOLIN [Concomitant]

REACTIONS (10)
  - BLOOD GLUCOSE INCREASED [None]
  - BRONCHOPNEUMONIA [None]
  - CEREBROVASCULAR ACCIDENT [None]
  - DEHYDRATION [None]
  - EYE HAEMORRHAGE [None]
  - GASTROINTESTINAL DISORDER [None]
  - INFLUENZA [None]
  - MUSCULOSKELETAL PAIN [None]
  - PULMONARY EMBOLISM [None]
  - ROTATOR CUFF SYNDROME [None]
